FAERS Safety Report 14877508 (Version 3)
Quarter: 2019Q2

REPORT INFORMATION
  Report Type: Spontaneous
  Country: US (occurrence: US)
  Receive Date: 20180510
  Receipt Date: 20190412
  Transmission Date: 20190711
  Serious: Yes (Hospitalization)
  Sender: FDA-Public Use
  Company Number: US-ACTELION-A-NJ2018-171752

PATIENT
  Sex: Female
  Weight: 97.51 kg

DRUGS (6)
  1. UPTRAVI [Suspect]
     Active Substance: SELEXIPAG
     Indication: PULMONARY ARTERIAL HYPERTENSION
     Dosage: 800 MCG, BID
     Route: 048
  2. ADCIRCA [Concomitant]
     Active Substance: TADALAFIL
  3. UPTRAVI [Suspect]
     Active Substance: SELEXIPAG
     Dosage: 1600 MCG, BID
     Route: 048
  4. UPTRAVI [Suspect]
     Active Substance: SELEXIPAG
     Dosage: UNK
     Route: 048
  5. WARFARIN [Concomitant]
     Active Substance: WARFARIN
  6. NIFEDIPINE. [Concomitant]
     Active Substance: NIFEDIPINE

REACTIONS (6)
  - Headache [Unknown]
  - Feeling abnormal [Unknown]
  - Respiratory failure [Unknown]
  - Pneumonia [Unknown]
  - Bronchitis viral [Unknown]
  - Cerebrovascular accident [Unknown]
